FAERS Safety Report 6307802-5 (Version None)
Quarter: 2009Q3

REPORT INFORMATION
  Report Type: 
  Country: None (occurrence: None)
  Receive Date: 20090813
  Receipt Date: 20090805
  Transmission Date: 20100115
  Serious: Yes (Life-Threatening, Hospitalization)
  Sender: FDA-Public Use
  Company Number: DE-TYCO HEALTHCARE/MALLINCKRODT-T200901467

PATIENT

DRUGS (1)
  1. OPTIRAY 350 [Suspect]
     Indication: COMPUTERISED TOMOGRAM ABDOMEN
     Dosage: 70 ML, SINGLE
     Route: 042
     Dates: start: 20090803, end: 20090803

REACTIONS (4)
  - BLOOD PRESSURE DECREASED [None]
  - CARDIOVASCULAR INSUFFICIENCY [None]
  - HYPERHIDROSIS [None]
  - TACHYCARDIA [None]
